FAERS Safety Report 24990104 (Version 2)
Quarter: 2025Q3

REPORT INFORMATION
  Report Type: Report from Study
  Country: US (occurrence: None)
  Receive Date: 20250220
  Receipt Date: 20250816
  Transmission Date: 20251020
  Serious: No
  Sender: ALEXION PHARMACEUTICALS
  Company Number: US-AstraZeneca-2014SE72826

PATIENT
  Age: 66 Year
  Sex: Female
  Weight: 81.647 kg

DRUGS (5)
  1. NEXIUM [Suspect]
     Active Substance: ESOMEPRAZOLE MAGNESIUM
     Indication: Gastrooesophageal reflux disease
     Dosage: 40 MILLIGRAM, QD
     Dates: start: 2004, end: 201408
  2. NEXIUM [Suspect]
     Active Substance: ESOMEPRAZOLE MAGNESIUM
     Indication: Gastrooesophageal reflux disease
  3. NEXIUM [Suspect]
     Active Substance: ESOMEPRAZOLE MAGNESIUM
     Dosage: 23.8 MILLIGRAM, QD
     Dates: start: 201408
  4. NEXIUM [Suspect]
     Active Substance: ESOMEPRAZOLE MAGNESIUM
  5. TOPROL XL [Suspect]
     Active Substance: METOPROLOL SUCCINATE
     Indication: Hypertension
     Dosage: 50 MILLIGRAM, QD
     Dates: start: 2008

REACTIONS (14)
  - Regurgitation [Unknown]
  - Dyspepsia [Unknown]
  - Feeling abnormal [Unknown]
  - Blood pressure increased [Unknown]
  - Tinnitus [Unknown]
  - Dyspnoea [Unknown]
  - Body height decreased [Unknown]
  - Fatigue [Unknown]
  - Flatulence [Unknown]
  - Eructation [Unknown]
  - Paraesthesia [Unknown]
  - Headache [Unknown]
  - Intentional product misuse [Unknown]
  - Product dose omission issue [Unknown]

NARRATIVE: CASE EVENT DATE: 20140901
